FAERS Safety Report 5131762-6 (Version None)
Quarter: 2006Q4

REPORT INFORMATION
  Report Type: 
  Country: None (occurrence: None)
  Receive Date: 20061020
  Receipt Date: 20060529
  Transmission Date: 20070319
  Serious: Yes (Other)
  Sender: FDA-Public Use
  Company Number: JP-MERCK-0606USA02062

PATIENT
  Age: 32 Year
  Sex: Male
  Weight: 59 kg

DRUGS (1)
  1. PROPECIA [Suspect]
     Indication: MALE PATTERN BALDNESS
     Route: 048
     Dates: start: 20060119, end: 20060223

REACTIONS (4)
  - DEPRESSION [None]
  - FACE OEDEMA [None]
  - HOT FLUSH [None]
  - MEMORY IMPAIRMENT [None]
